FAERS Safety Report 18766814 (Version 1)
Quarter: 2021Q1

REPORT INFORMATION
  Report Type: Spontaneous
  Country: US (occurrence: US)
  Receive Date: 20210120
  Receipt Date: 20210120
  Transmission Date: 20210419
  Serious: Yes (Other)
  Sender: FDA-Public Use
  Company Number: None

PATIENT
  Age: 43 Year
  Sex: Female

DRUGS (6)
  1. FIRE CIDER [Concomitant]
  2. FISH  OIL [Concomitant]
     Active Substance: FISH OIL
  3. PAROEX [Suspect]
     Active Substance: CHLORHEXIDINE GLUCONATE
     Indication: GINGIVAL DISCOMFORT
     Dosage: ?          QUANTITY:1 OUNCE(S);?
     Route: 048
     Dates: start: 20201110, end: 20201230
  4. ELDERBERRY SUPPLEMENT [Concomitant]
  5. VITAMIN MULTIS [Concomitant]
  6. VIT B [Concomitant]
     Active Substance: VITAMIN B

REACTIONS (4)
  - Suspected transmission of an infectious agent via product [None]
  - Mycobacterium test positive [None]
  - Burkholderia test positive [None]
  - Recalled product [None]

NARRATIVE: CASE EVENT DATE: 20210118
